FAERS Safety Report 25508947 (Version 1)
Quarter: 2025Q3

REPORT INFORMATION
  Report Type: Spontaneous
  Country: US (occurrence: US)
  Receive Date: 20250703
  Receipt Date: 20250703
  Transmission Date: 20251020
  Serious: No
  Sender: BAUSCH AND LOMB
  Company Number: US-BAUSCHBL-2025BNL011642

PATIENT
  Age: 80 Year
  Sex: Female

DRUGS (1)
  1. MIEBO [Suspect]
     Active Substance: PERFLUOROHEXYLOCTANE
     Indication: Dry eye
     Route: 047
     Dates: start: 20250625, end: 20250627

REACTIONS (5)
  - Vision blurred [Unknown]
  - Eye irritation [Unknown]
  - Headache [Unknown]
  - Purulent discharge [Unknown]
  - Nightmare [Unknown]

NARRATIVE: CASE EVENT DATE: 20250601
